FAERS Safety Report 16220444 (Version 1)
Quarter: 2019Q2

REPORT INFORMATION
  Report Type: Spontaneous
  Country: IT (occurrence: IT)
  Receive Date: 20190420
  Receipt Date: 20190420
  Transmission Date: 20190711
  Serious: Yes (Other)
  Sender: FDA-Public Use
  Company Number: PHHY2019IT088863

PATIENT
  Age: 25 Year
  Sex: Female
  Weight: 70 kg

DRUGS (2)
  1. PARACETAMOL [Suspect]
     Active Substance: ACETAMINOPHEN
     Indication: DRUG ABUSE
     Dosage: 2 G, TOTAL
     Route: 048
     Dates: start: 20190213, end: 20190213
  2. IRON [Suspect]
     Active Substance: IRON
     Indication: DRUG ABUSE
     Dosage: 105 MG, TOTAL
     Route: 048
     Dates: start: 20190213, end: 20190213

REACTIONS (1)
  - Drug abuse [Recovering/Resolving]

NARRATIVE: CASE EVENT DATE: 20190213
